FAERS Safety Report 20840110 (Version 5)
Quarter: 2022Q3

REPORT INFORMATION
  Report Type: Spontaneous
  Country: US (occurrence: US)
  Receive Date: 20220517
  Receipt Date: 20220707
  Transmission Date: 20221027
  Serious: Yes (Hospitalization, Other)
  Sender: FDA-Public Use
  Company Number: US-PFIZER INC-202200702271

PATIENT
  Age: 54 Year
  Sex: Female
  Weight: 99.79 kg

DRUGS (1)
  1. NICOTROL [Suspect]
     Active Substance: NICOTINE
     Indication: Smoking cessation therapy
     Dosage: UNK (ONE CARTRIDGE BY FREQUENT CONTINUOUS PUFFING, USE FOR 12 WEEKS AND REDUCE GRADUALLY)
     Dates: start: 202204

REACTIONS (2)
  - Nephrolithiasis [Unknown]
  - Drug ineffective [Unknown]

NARRATIVE: CASE EVENT DATE: 20220101
